FAERS Safety Report 4683247-9 (Version None)
Quarter: 2005Q2

REPORT INFORMATION
  Report Type: 
  Country: None (occurrence: None)
  Receive Date: 20050602
  Receipt Date: 20050202
  Transmission Date: 20051028
  Serious: No
  Sender: FDA-Public Use
  Company Number: USA050289820

PATIENT
  Age: 57 Year
  Sex: Female

DRUGS (4)
  1. CYMBALTA [Suspect]
     Indication: DEPRESSION
     Dosage: 60 MG DAY
     Dates: start: 20041201
  2. PROLIXIN [Concomitant]
  3. DIOVAN [Concomitant]
  4. ALDACTONE [Concomitant]

REACTIONS (1)
  - HYPERTENSION [None]
